FAERS Safety Report 17408691 (Version 1)
Quarter: 2020Q1

REPORT INFORMATION
  Report Type: Spontaneous
  Country: HR (occurrence: HR)
  Receive Date: 20200212
  Receipt Date: 20200212
  Transmission Date: 20200409
  Serious: Yes (Hospitalization, Other)
  Sender: FDA-Public Use
  Company Number: HR-JNJFOC-20200208685

PATIENT
  Age: 57 Year
  Sex: Male
  Weight: 90 kg

DRUGS (5)
  1. RIVAROXABAN [Suspect]
     Active Substance: RIVAROXABAN
     Indication: PULMONARY EMBOLISM
     Dosage: 20 MG, QD
     Route: 048
  2. PANTOPRAZOLE [Concomitant]
     Active Substance: PANTOPRAZOLE
     Dosage: 40 MG, QD
  3. DALTEPARIN [Concomitant]
     Active Substance: DALTEPARIN
     Dosage: 10000 IJ, BID
     Route: 058
  4. RIVAROXABAN [Suspect]
     Active Substance: RIVAROXABAN
     Indication: DEEP VEIN THROMBOSIS
     Dosage: 15 MG, BID
     Route: 048
  5. CEFUROXIME                         /00454602/ [Concomitant]
     Active Substance: CEFUROXIME SODIUM
     Dosage: 500 MG, BID

REACTIONS (4)
  - Cough [Unknown]
  - Lung adenocarcinoma [Unknown]
  - Dyspnoea exertional [Unknown]
  - Haemoptysis [Unknown]

NARRATIVE: CASE EVENT DATE: 201911
